FAERS Safety Report 10177151 (Version 1)
Quarter: 2014Q2

REPORT INFORMATION
  Report Type: Spontaneous
  Country: US (occurrence: US)
  Receive Date: 20140516
  Receipt Date: 20140516
  Transmission Date: 20141212
  Serious: Yes (Other)
  Sender: FDA-Public Use
  Company Number: 2014SP001470

PATIENT
  Age: 50 Year
  Sex: Male

DRUGS (1)
  1. LATUDA [Suspect]
     Indication: SCHIZOPHRENIA, PARANOID TYPE
     Route: 048
     Dates: start: 2011, end: 2011

REACTIONS (1)
  - Transient ischaemic attack [Recovered/Resolved]
